FAERS Safety Report 5012004-9 (Version None)
Quarter: 2006Q2

REPORT INFORMATION
  Report Type: 
  Country: None (occurrence: None)
  Receive Date: 20060526
  Receipt Date: 20060517
  Transmission Date: 20061013
  Serious: Yes (Hospitalization)
  Sender: FDA-Public Use
  Company Number: FR-ABBOTT-06P-056-0333458-00

PATIENT
  Age: 56 Year
  Sex: Male
  Weight: 55 kg

DRUGS (6)
  1. NORVIR [Suspect]
     Indication: HIV INFECTION
     Route: 048
     Dates: start: 20050509
  2. VALPROIC ACID [Suspect]
     Indication: EPILEPSY
     Route: 048
     Dates: start: 19990604
  3. DIDANOSINE [Suspect]
     Indication: HIV INFECTION
     Route: 048
     Dates: start: 20020828
  4. TENOFOVIR [Suspect]
     Indication: HIV INFECTION
     Route: 048
     Dates: start: 20020828, end: 20060221
  5. ATAZANAVIR [Suspect]
     Indication: HIV INFECTION
     Route: 048
     Dates: start: 20050509
  6. CLOPIDOGREL [Suspect]
     Indication: ARTERIOPATHIC DISEASE
     Route: 048
     Dates: start: 20040901

REACTIONS (2)
  - FANCONI SYNDROME [None]
  - RENAL FAILURE [None]
